FAERS Safety Report 13576359 (Version 12)
Quarter: 2018Q3

REPORT INFORMATION
  Report Type: Report from Study
  Country: FR (occurrence: FR)
  Receive Date: 20170524
  Receipt Date: 20180927
  Transmission Date: 20181010
  Serious: Yes (Death, Hospitalization, Other)
  Sender: FDA-Public Use
  Company Number: FR-BRISTOL-MYERS SQUIBB COMPANY-BMS-2017-043152

PATIENT
  Age: 71 Year
  Sex: Male

DRUGS (1)
  1. NIVOLUMAB [Suspect]
     Active Substance: NIVOLUMAB
     Indication: LUNG NEOPLASM MALIGNANT
     Dosage: 235 MG, Q2WK
     Route: 042
     Dates: start: 20170412, end: 20171207

REACTIONS (11)
  - Vomiting [Fatal]
  - Diarrhoea [Fatal]
  - Prerenal failure [Unknown]
  - Presyncope [Recovered/Resolved]
  - Dehydration [Fatal]
  - Nausea [Recovered/Resolved]
  - General physical health deterioration [Fatal]
  - Gastrointestinal haemorrhage [Unknown]
  - Melaena [Recovered/Resolved]
  - Anaemia [Recovered/Resolved]
  - Bronchitis [Recovered/Resolved]

NARRATIVE: CASE EVENT DATE: 20170512
